FAERS Safety Report 7155547-4 (Version None)
Quarter: 2010Q4

REPORT INFORMATION
  Report Type: 
  Country: None (occurrence: None)
  Receive Date: 20101214
  Receipt Date: 20091118
  Transmission Date: 20110411
  Serious: Yes (Other)
  Sender: FDA-Public Use
  Company Number: US-AMGEN-QUU375396

PATIENT

DRUGS (5)
  1. ENBREL [Suspect]
     Indication: RHEUMATOID ARTHRITIS
     Dosage: 50 MG, QWK
     Route: 058
     Dates: start: 20070901
  2. PREDNISONE [Concomitant]
     Dosage: 10 MG, QD
     Route: 048
  3. PRENATAL VITAMINS [Concomitant]
     Dosage: UNK UNK, QD
     Route: 048
  4. FOLIC ACID [Concomitant]
     Dosage: 800 MG, QD
  5. LOVAZA [Concomitant]

REACTIONS (1)
  - BETA HAEMOLYTIC STREPTOCOCCAL INFECTION [None]
